FAERS Safety Report 17024840 (Version 1)
Quarter: 2019Q4

REPORT INFORMATION
  Report Type: Report from Study
  Country: GB (occurrence: IE)
  Receive Date: 20191113
  Receipt Date: 20191113
  Transmission Date: 20200122
  Serious: Yes (Other)
  Sender: FDA-Public Use
  Company Number: NVSC2019IE033061

PATIENT
  Age: 48 Year
  Sex: Female

DRUGS (2)
  1. ELTROXIN [Concomitant]
     Active Substance: LEVOTHYROXINE
     Indication: HYPOTHYROIDISM
     Route: 065
  2. GILENYA [Suspect]
     Active Substance: FINGOLIMOD HYDROCHLORIDE
     Indication: RELAPSING-REMITTING MULTIPLE SCLEROSIS
     Dosage: 0.5 MG, QD
     Route: 048
     Dates: start: 20191107

REACTIONS (3)
  - Bradycardia [Unknown]
  - Electrocardiogram PR prolongation [Unknown]
  - Dizziness [Unknown]

NARRATIVE: CASE EVENT DATE: 20191107
